FAERS Safety Report 6266028-4 (Version None)
Quarter: 2009Q3

REPORT INFORMATION
  Report Type: 
  Country: None (occurrence: None)
  Receive Date: 20090713
  Receipt Date: 20090707
  Transmission Date: 20100115
  Serious: Yes (Hospitalization)
  Sender: FDA-Public Use
  Company Number: US-MERCK-0902USA03786

PATIENT
  Age: 61 Year
  Sex: Female

DRUGS (7)
  1. ZETIA [Suspect]
     Indication: BLOOD CHOLESTEROL
     Route: 048
     Dates: start: 20051201, end: 20060201
  2. LOVASTATIN [Concomitant]
     Route: 048
  3. PAXIL [Concomitant]
     Route: 065
  4. XANAX [Concomitant]
     Route: 065
  5. LORTAB [Concomitant]
     Route: 065
  6. COUMADIN [Concomitant]
     Route: 065
  7. PROMETHAZINE [Concomitant]
     Route: 065

REACTIONS (3)
  - MUSCLE TIGHTNESS [None]
  - MUSCULAR WEAKNESS [None]
  - MYALGIA [None]
